FAERS Safety Report 7534679-2 (Version None)
Quarter: 2011Q2

REPORT INFORMATION
  Report Type: 
  Country: None (occurrence: None)
  Receive Date: 20110609
  Receipt Date: 20110411
  Transmission Date: 20111010
  Serious: Yes (Other)
  Sender: FDA-Public Use
  Company Number: PHHY2011AT36683

PATIENT
  Age: 75 Year
  Sex: Female

DRUGS (1)
  1. ZOLEDRONIC ACID [Suspect]
     Indication: BRONCHIAL CARCINOMA
     Dosage: 4 MG, QMO
     Route: 042
     Dates: start: 20060101

REACTIONS (1)
  - OSTEONECROSIS OF JAW [None]
